FAERS Safety Report 12745417 (Version 3)
Quarter: 2022Q2

REPORT INFORMATION
  Report Type: Spontaneous
  Country: US (occurrence: US)
  Receive Date: 20160915
  Receipt Date: 20220428
  Transmission Date: 20220720
  Serious: No
  Sender: FDA-Public Use
  Company Number: US-PFIZER INC-2016428431

PATIENT
  Age: 78 Year
  Sex: Female

DRUGS (2)
  1. BOSULIF [Suspect]
     Active Substance: BOSUTINIB MONOHYDRATE
     Dosage: 500 MG, DAILY
     Route: 048
     Dates: start: 20160906
  2. BOSULIF [Suspect]
     Active Substance: BOSUTINIB MONOHYDRATE
     Dosage: 300 MG, DAILY (300 MG PER DAY)

REACTIONS (4)
  - Headache [Unknown]
  - Nausea [Unknown]
  - Fluid retention [Unknown]
  - Dysuria [Unknown]

NARRATIVE: CASE EVENT DATE: 20160909
